FAERS Safety Report 5650524-4 (Version None)
Quarter: 2008Q1

REPORT INFORMATION
  Report Type: 
  Country: None (occurrence: None)
  Receive Date: 20080305
  Receipt Date: 20080227
  Transmission Date: 20080703
  Serious: Yes (Disabling, Other)
  Sender: FDA-Public Use
  Company Number: PHMT2006CA01250

PATIENT
  Age: 50 Year
  Sex: Male

DRUGS (12)
  1. MIACALCIN [Concomitant]
  2. ZOMETA [Suspect]
     Indication: METASTASES TO BONE
     Dosage: 4 MG EVERY 4 WEEKS
     Route: 042
     Dates: start: 20030902, end: 20060905
  3. CALCIUM [Concomitant]
     Route: 048
  4. DIAZEPAM [Concomitant]
  5. NEURONTIN [Concomitant]
  6. DILAUDID [Concomitant]
  7. NAPROSYN [Concomitant]
  8. HYDROMORPHONE HCL [Concomitant]
  9. ZYPREXA [Concomitant]
  10. PANTOPRAZOLE SODIUM [Concomitant]
  11. VITAMIN D [Concomitant]
  12. TYLENOL (CAPLET) [Concomitant]

REACTIONS (15)
  - ABSCESS [None]
  - BONE LESION [None]
  - BREATH ODOUR [None]
  - CONDITION AGGRAVATED [None]
  - DENTAL OPERATION [None]
  - ENTERAL NUTRITION [None]
  - FEEDING DISORDER [None]
  - GINGIVAL DISORDER [None]
  - IMPAIRED HEALING [None]
  - JAW FRACTURE [None]
  - OSTEONECROSIS [None]
  - PAIN IN JAW [None]
  - TOOTH DISORDER [None]
  - TOOTH EXTRACTION [None]
  - TOOTH FRACTURE [None]
